FAERS Safety Report 5648249-4 (Version None)
Quarter: 2008Q1

REPORT INFORMATION
  Report Type: 
  Country: None (occurrence: None)
  Receive Date: 20080304
  Receipt Date: 20080229
  Transmission Date: 20080703
  Serious: Yes (Hospitalization, Other)
  Sender: FDA-Public Use
  Company Number: JP-BRISTOL-MYERS SQUIBB COMPANY-14023451

PATIENT
  Age: 45 Year
  Sex: Female

DRUGS (9)
  1. TAXOL [Suspect]
     Indication: UTERINE CANCER
     Dosage: AT CYC-1, FIRST EVENT AND AT CYC-3, SECOND EVENT(INTESTINAL OBSTRUCTION) OCCURED.
     Route: 041
     Dates: start: 20061207, end: 20070131
  2. CARBOMERCK [Suspect]
     Indication: UTERINE CANCER
     Dosage: AT CYC-1, FIRST EVENT AND AT CYC-3, SECOND EVENT(INTESTINAL OBSTRUCTION) OCCURED.
     Route: 042
     Dates: start: 20061207, end: 20070131
  3. LOXONIN [Concomitant]
     Dosage: DF=TABS
     Route: 048
     Dates: start: 20061208, end: 20070205
  4. SELBEX [Concomitant]
     Dosage: 3 DOSAGE FORM = 3 CAPS
     Route: 048
     Dates: start: 20061208, end: 20070205
  5. UBRETID [Concomitant]
     Dosage: 3 DOSAGE FORM = 3 TABS
     Route: 048
     Dates: start: 20061208, end: 20070205
  6. GASMOTIN [Concomitant]
     Dosage: 3 DOSAGE FORM = 3 TABS
     Route: 048
     Dates: start: 20061208, end: 20070205
  7. MAGMITT [Concomitant]
     Route: 048
     Dates: start: 20061208, end: 20070205
  8. MARZULENE-S [Concomitant]
     Dosage: 3MG/L-GLUTAMIN 990MG/1G GRANULE DAILY
     Route: 048
     Dates: start: 20061208, end: 20070205
  9. NASEA [Concomitant]
     Route: 042
     Dates: start: 20061207, end: 20070202

REACTIONS (2)
  - HEPATIC FUNCTION ABNORMAL [None]
  - INTESTINAL OBSTRUCTION [None]
